FAERS Safety Report 20479875 (Version 4)
Quarter: 2022Q2

REPORT INFORMATION
  Report Type: Other
  Country: AT (occurrence: None)
  Receive Date: 20220216
  Receipt Date: 20220401
  Transmission Date: 20220721
  Serious: Yes (Hospitalization, Other)
  Sender: FDA-Public Use
  Company Number: AT-ROCHE-3016595

PATIENT
  Age: 47 Year
  Sex: Female

DRUGS (36)
  1. ADO-TRASTUZUMAB EMTANSINE [Suspect]
     Active Substance: ADO-TRASTUZUMAB EMTANSINE
     Indication: HER2 positive breast cancer
     Dosage: LAST DRUG ADMINISTRATION PRIOR TO AE- 21/APR/2021
     Route: 042
     Dates: start: 20201001
  2. TRASTUZUMAB [Suspect]
     Active Substance: TRASTUZUMAB
     Indication: HER2 positive breast cancer
     Route: 041
     Dates: start: 20180924
  3. TRASTUZUMAB [Suspect]
     Active Substance: TRASTUZUMAB
     Route: 041
     Dates: start: 20181015, end: 20200910
  4. TRASTUZUMAB [Suspect]
     Active Substance: TRASTUZUMAB
     Dosage: MOST RECENT DOSE PRIOR TO THE EVENT:03/NOV/2021
     Route: 041
     Dates: start: 20210512, end: 20211103
  5. PERTUZUMAB [Suspect]
     Active Substance: PERTUZUMAB
     Indication: HER2 positive breast cancer
     Route: 042
     Dates: start: 20180924
  6. PERTUZUMAB [Suspect]
     Active Substance: PERTUZUMAB
     Dosage: MOST RECENT DOSE PRIOR TO THE EVENT: 10/SEP/2020
     Route: 042
     Dates: start: 20181015
  7. CAPECITABINE [Suspect]
     Active Substance: CAPECITABINE
     Indication: HER2 positive breast cancer
     Route: 048
     Dates: start: 20210512, end: 20210513
  8. CAPECITABINE [Suspect]
     Active Substance: CAPECITABINE
     Dosage: MOST RECENT DOSE PRIOR TO THE EVENT: 24/NOV/2021
     Route: 048
     Dates: start: 20210515
  9. DENOSUMAB [Suspect]
     Active Substance: DENOSUMAB
     Indication: HER2 positive breast cancer
     Dosage: MOST RECENT DOSE PRIOR TO THE EVENT: 18/SEP/2018
     Route: 058
     Dates: start: 20180918
  10. DOCETAXEL [Suspect]
     Active Substance: DOCETAXEL
     Indication: HER2 positive breast cancer
     Dosage: MOST RECENT DOSE ON 23/JAN/2019
     Route: 042
     Dates: start: 20180924
  11. TUCATINIB [Suspect]
     Active Substance: TUCATINIB
     Indication: HER2 positive breast cancer
     Route: 048
     Dates: start: 20210512, end: 20210513
  12. TUCATINIB [Suspect]
     Active Substance: TUCATINIB
     Route: 048
     Dates: start: 20210515, end: 20211124
  13. ALPRAZOLAM [Concomitant]
     Active Substance: ALPRAZOLAM
     Dosage: PRN (AS NEEDED)
     Route: 048
     Dates: start: 20181114
  14. ASCORBIC ACID\CALCIUM PHOSPHATE\CHOLECALCIFEROL\CITRIC ACID MONOHYDRAT [Concomitant]
     Active Substance: ASCORBIC ACID\CALCIUM PHOSPHATE\CHOLECALCIFEROL\CITRIC ACID MONOHYDRATE
     Route: 048
     Dates: start: 20190827
  15. DRONABINOL [Concomitant]
     Active Substance: DRONABINOL
     Route: 048
     Dates: start: 20190123
  16. DRONABINOL [Concomitant]
     Active Substance: DRONABINOL
     Route: 048
     Dates: start: 20210304
  17. PRAM (AUSTRIA) [Concomitant]
     Route: 048
  18. KEPPRA [Concomitant]
     Active Substance: LEVETIRACETAM
     Indication: Epilepsy
     Route: 048
     Dates: start: 20210513
  19. LOVENOX [Concomitant]
     Active Substance: ENOXAPARIN SODIUM
     Route: 058
     Dates: start: 20211124
  20. ZOFRAN [Concomitant]
     Active Substance: ONDANSETRON HYDROCHLORIDE
     Dosage: PRN (AS NEEDED)
     Route: 048
     Dates: start: 20181016, end: 20190308
  21. ZOFRAN [Concomitant]
     Active Substance: ONDANSETRON HYDROCHLORIDE
     Dosage: 1.00 AMPULE
     Route: 042
     Dates: start: 20180924, end: 20210421
  22. ZOFRAN [Concomitant]
     Active Substance: ONDANSETRON HYDROCHLORIDE
     Dosage: EVERY 3 WEEKS FOR 2 DAYS
     Route: 048
     Dates: start: 20220124
  23. ZOFRAN [Concomitant]
     Active Substance: ONDANSETRON HYDROCHLORIDE
     Dosage: EVERY 3 WEEKS BEFORE EACH CHEMOTHERAPY  21/APR/2021
     Route: 042
     Dates: start: 20211213
  24. DEXAMETHASONE [Concomitant]
     Active Substance: DEXAMETHASONE
     Route: 048
     Dates: start: 20181016, end: 20181017
  25. DEXAMETHASONE [Concomitant]
     Active Substance: DEXAMETHASONE
     Dosage: OTHER EVERY 3 WEEKS FOR TWO DAYS
     Route: 048
     Dates: start: 20220124
  26. DEXAMETHASONE [Concomitant]
     Active Substance: DEXAMETHASONE
     Dosage: OTHER EVERY 3 WEEKS BEFORE EACH CHEMOTHERAPY
     Route: 042
     Dates: start: 20211213
  27. TRAMADOL [Concomitant]
     Active Substance: TRAMADOL
     Route: 048
     Dates: start: 2018, end: 20190514
  28. TRAMADOL [Concomitant]
     Active Substance: TRAMADOL
     Dosage: PRN (AS NEEDED
     Route: 048
     Dates: start: 2018, end: 20190308
  29. XGEVA [Concomitant]
     Active Substance: DENOSUMAB
     Route: 013
     Dates: start: 20180918
  30. NOVALGIN (METAMIZOLE SODIUM) [Concomitant]
     Active Substance: METAMIZOLE SODIUM
     Dosage: PRN (AS NEEDED)
     Route: 048
     Dates: start: 2018, end: 20210309
  31. ERYTHROPOIETIN [Concomitant]
     Active Substance: ERYTHROPOIETIN
     Route: 058
     Dates: start: 20181016, end: 20190308
  32. EMEND [Concomitant]
     Active Substance: APREPITANT
     Dosage: OTHER 4 DAYS CONSECUTIVELY EVERY 4 WEEKS
     Route: 048
     Dates: start: 20181114, end: 20190125
  33. TAMOXIFEN [Concomitant]
     Active Substance: TAMOXIFEN
     Route: 048
     Dates: start: 20200325, end: 20200930
  34. MODERNA COVID-19 VACCINE [Concomitant]
     Active Substance: ELASOMERAN
     Route: 030
     Dates: start: 20210315
  35. MODERNA COVID-19 VACCINE [Concomitant]
     Active Substance: ELASOMERAN
     Route: 030
     Dates: start: 20210412
  36. TEMESTA [Concomitant]
     Indication: Epilepsy
     Route: 042
     Dates: start: 20210513

REACTIONS (4)
  - Syncope [Recovered/Resolved]
  - Soft tissue infection [Recovered/Resolved]
  - Hypokalaemia [Recovered/Resolved]
  - Diarrhoea [Recovered/Resolved]

NARRATIVE: CASE EVENT DATE: 20211123
